FAERS Safety Report 5025088-9 (Version None)
Quarter: 2006Q2

REPORT INFORMATION
  Report Type: 
  Country: None (occurrence: None)
  Receive Date: 20060426
  Receipt Date: 20060318
  Transmission Date: 20061013
  Serious: Yes (Other)
  Sender: FDA-Public Use
  Company Number: 2006011661

PATIENT
  Age: 74 Year
  Sex: Female
  Weight: 63.5036 kg

DRUGS (13)
  1. LYRICA [Suspect]
     Indication: NEUROPATHY
     Dosage: 150 MG (75 MG,2 IN 1 D),ORAL
     Route: 048
     Dates: start: 20060119
  2. METOPROLOL SUCCINATE [Concomitant]
  3. LIPITOR [Concomitant]
  4. LANOXIN [Concomitant]
  5. METAGLIP (GLIPIZIDE, METFORMIN HYDROCHLORIDE) [Concomitant]
  6. TORSEMIDE [Concomitant]
  7. DILTIAZEM [Concomitant]
  8. MULTIPLE VITAMINS (ASCORBIC ACID, ERGOCALCIFEROL, FOLIC ACID, RETINOL, [Concomitant]
  9. LAXATIVES (LAXATIVES) [Concomitant]
  10. ASPIRIN [Concomitant]
  11. MIRALAX [Concomitant]
  12. DIOVAN [Concomitant]
  13. ARANESP [Concomitant]

REACTIONS (4)
  - BALANCE DISORDER [None]
  - BRADYPHRENIA [None]
  - DRY MOUTH [None]
  - SOMNOLENCE [None]
